FAERS Safety Report 8849013 (Version 1)
Quarter: 2012Q4

REPORT INFORMATION
  Report Type: 
  Country: US (occurrence: US)
  Receive Date: 20121019
  Receipt Date: 20121019
  Transmission Date: 20130627
  Serious: Yes (Hospitalization)
  Sender: FDA-Public Use
  Company Number: US-ELI_LILLY_AND_COMPANY-US201210003174

PATIENT
  Age: 42 Year
  Sex: Female

DRUGS (3)
  1. CYMBALTA [Suspect]
     Indication: OSTEOARTHRITIS
     Dosage: UNK
  2. NORCO [Concomitant]
  3. NAPROXEN [Concomitant]

REACTIONS (2)
  - Brain operation [Unknown]
  - Intentional drug misuse [Unknown]
